FAERS Safety Report 5615285-3 (Version None)
Quarter: 2008Q1

REPORT INFORMATION
  Report Type: 
  Country: None (occurrence: None)
  Receive Date: 20080206
  Receipt Date: 20080130
  Transmission Date: 20080703
  Serious: Yes (Other)
  Sender: FDA-Public Use
  Company Number: PHFR2008GB00664

PATIENT
  Sex: Male

DRUGS (1)
  1. AREDIA [Suspect]
     Indication: BONE PAIN
     Dosage: 90 MG, QMO
     Route: 065

REACTIONS (1)
  - UPPER LIMB FRACTURE [None]
